FAERS Safety Report 12238632 (Version 1)
Quarter: 2016Q2

REPORT INFORMATION
  Report Type: Spontaneous
  Country: US (occurrence: None)
  Receive Date: 20160404
  Receipt Date: 20160404
  Transmission Date: 20160815
  Serious: Yes (Hospitalization)
  Sender: FDA-Public Use
  Company Number: None

PATIENT
  Age: 50 Year
  Sex: Female
  Weight: 83 kg

DRUGS (13)
  1. METHYLPREDNISOLONE (MEDROL DOSEPAK) [Concomitant]
  2. LASIX [Concomitant]
     Active Substance: FUROSEMIDE
  3. WARFARIN [Suspect]
     Active Substance: WARFARIN
     Indication: COAGULATION FACTOR V LEVEL ABNORMAL
     Route: 048
  4. OSELTAMIVIR (TAMIFLU) [Concomitant]
  5. OMEGA-3 FATTY ACIDS (FISH OIL) [Concomitant]
  6. FLONASE [Concomitant]
     Active Substance: FLUTICASONE PROPIONATE
  7. ASPIRIN. [Concomitant]
     Active Substance: ASPIRIN
  8. LISINOPRIL (ZESTRIL) [Concomitant]
  9. METOPROLOL (TOPROL-XL) [Concomitant]
  10. TRAMADOL (ULTRAM) [Concomitant]
  11. ROSUVASTATIN (CRESTOR) [Concomitant]
  12. DIGOXIN (LANOXIN) [Concomitant]
  13. GUAIFENESIN-CODEINE (CHERATUSSIN AC) [Concomitant]

REACTIONS (5)
  - Hypotension [None]
  - Extravasation [None]
  - Syncope [None]
  - Pelvic haematoma [None]
  - Abdominal wall haematoma [None]

NARRATIVE: CASE EVENT DATE: 20160322
